FAERS Safety Report 19458603 (Version 18)
Quarter: 2024Q3

REPORT INFORMATION
  Report Type: Spontaneous
  Country: CA (occurrence: CA)
  Receive Date: 20210624
  Receipt Date: 20240912
  Transmission Date: 20241017
  Serious: Yes (Other)
  Sender: PFIZER
  Company Number: CA-PFIZER INC-2021438746

PATIENT
  Age: 38 Year
  Sex: Female

DRUGS (10)
  1. RUXIENCE [Suspect]
     Active Substance: RITUXIMAB-PVVR
     Indication: Pemphigus
     Dosage: 1000 MG, DAY 1 AND 15
     Route: 042
     Dates: start: 20210506, end: 20210520
  2. RUXIENCE [Suspect]
     Active Substance: RITUXIMAB-PVVR
     Dosage: 1000 MG, DAY1, DAY15
     Route: 042
     Dates: start: 20210520
  3. RUXIENCE [Suspect]
     Active Substance: RITUXIMAB-PVVR
     Dosage: 500 MG, FOR ONE DOSE, ON DAY 1 AND DAY 15
     Route: 042
     Dates: start: 20211231, end: 20220114
  4. RUXIENCE [Suspect]
     Active Substance: RITUXIMAB-PVVR
     Dosage: 500 MG, FOR ONE DOSE
     Route: 042
     Dates: start: 20220114
  5. RUXIENCE [Suspect]
     Active Substance: RITUXIMAB-PVVR
     Dosage: 1000 MG, DAY 1 AND 15
     Route: 042
     Dates: start: 20230818
  6. RUXIENCE [Suspect]
     Active Substance: RITUXIMAB-PVVR
     Dosage: 500 MG, FOR ONE DOSE
     Route: 042
     Dates: start: 20230831
  7. RUXIENCE [Suspect]
     Active Substance: RITUXIMAB-PVVR
     Dosage: 500 MG, 1 SINGLE DOSE
     Route: 042
     Dates: start: 20240322
  8. CORTISONE [Concomitant]
     Active Substance: CORTISONE
     Dosage: 15 MG
     Route: 065
  9. CORTISONE [Concomitant]
     Active Substance: CORTISONE
     Dosage: TAPERED
     Route: 065
  10. CORTISONE [Concomitant]
     Active Substance: CORTISONE
     Dosage: 10 MG
     Route: 065
     Dates: start: 202106

REACTIONS (23)
  - Heavy menstrual bleeding [Not Recovered/Not Resolved]
  - Polymenorrhoea [Not Recovered/Not Resolved]
  - Pruritus [Recovering/Resolving]
  - Anxiety [Unknown]
  - Irritability [Unknown]
  - Palpitations [Recovered/Resolved]
  - Swelling face [Not Recovered/Not Resolved]
  - Increased appetite [Not Recovered/Not Resolved]
  - Abdominal pain [Not Recovered/Not Resolved]
  - Contusion [Unknown]
  - Eye pruritus [Not Recovered/Not Resolved]
  - Vision blurred [Not Recovered/Not Resolved]
  - Fatigue [Recovered/Resolved]
  - Swelling [Not Recovered/Not Resolved]
  - Eye swelling [Recovered/Resolved]
  - Ecchymosis [Not Recovered/Not Resolved]
  - Pharyngeal swelling [Recovering/Resolving]
  - Mouth swelling [Recovering/Resolving]
  - Condition aggravated [Not Recovered/Not Resolved]
  - Skin discolouration [Recovering/Resolving]
  - Palpitations [Unknown]
  - Impaired work ability [Unknown]
  - Off label use [Unknown]

NARRATIVE: CASE EVENT DATE: 20210101
